FAERS Safety Report 6753477-0 (Version None)
Quarter: 2010Q2

REPORT INFORMATION
  Report Type: 
  Country: None (occurrence: None)
  Receive Date: 20100603
  Receipt Date: 20100521
  Transmission Date: 20101027
  Serious: Yes (Other)
  Sender: FDA-Public Use
  Company Number: PHHY2009JP33795

PATIENT
  Age: 62 Year
  Sex: Female

DRUGS (2)
  1. GLEEVEC [Suspect]
     Indication: CHRONIC MYELOID LEUKAEMIA
     Dosage: 400 MG PER DAY
     Route: 048
     Dates: start: 20040101
  2. GLEEVEC [Suspect]
     Dosage: UNK
     Route: 048
     Dates: start: 20090201, end: 20090601

REACTIONS (7)
  - CHEST PAIN [None]
  - COUGH [None]
  - FLUID RETENTION [None]
  - LUNG ADENOCARCINOMA [None]
  - NEOPLASM MALIGNANT [None]
  - PLEURAL EFFUSION [None]
  - RASH [None]
